FAERS Safety Report 16465506 (Version 1)
Quarter: 2019Q2

REPORT INFORMATION
  Report Type: Spontaneous
  Country: US (occurrence: US)
  Receive Date: 20190621
  Receipt Date: 20190621
  Transmission Date: 20190711
  Serious: No
  Sender: FDA-Public Use
  Company Number: US-EGALET US INC-US-2018EGA000576

PATIENT
  Sex: Male

DRUGS (1)
  1. SPRIX [Suspect]
     Active Substance: KETOROLAC TROMETHAMINE

REACTIONS (2)
  - Epistaxis [Unknown]
  - Oesophagitis [Unknown]
